FAERS Safety Report 4469361-1 (Version None)
Quarter: 2004Q4

REPORT INFORMATION
  Report Type: 
  Country: None (occurrence: None)
  Receive Date: 20041008
  Receipt Date: 20040219
  Transmission Date: 20050328
  Serious: No
  Sender: FDA-Public Use
  Company Number: US-BRISTOL-MYERS SQUIBB COMPANY-12513669

PATIENT
  Age: 60 Year
  Sex: Male
  Weight: 113 kg

DRUGS (11)
  1. AVAPRO [Suspect]
     Indication: HYPERTENSION
     Route: 048
     Dates: start: 19960101
  2. DIGOXIN [Concomitant]
     Indication: CORONARY ARTERY DISEASE
     Route: 048
  3. CARVEDILOL [Concomitant]
     Indication: STENT PLACEMENT
     Route: 048
  4. SPIRONOLACTONE [Concomitant]
     Indication: HYPERTENSION
     Route: 048
  5. PANTOPRAZOLE SODIUM [Concomitant]
     Indication: GASTROOESOPHAGEAL REFLUX DISEASE
     Route: 048
  6. WARFARIN SODIUM [Concomitant]
     Indication: COAGULOPATHY
     Route: 048
  7. FOLIC ACID [Concomitant]
     Indication: ANAEMIA
     Route: 048
  8. INSULIN [Concomitant]
     Indication: DIABETES MELLITUS
     Route: 058
  9. PRAVASTATIN SODIUM [Concomitant]
     Indication: BLOOD CHOLESTEROL INCREASED
     Route: 048
  10. TORSEMIDE [Concomitant]
     Indication: DIURETIC EFFECT
     Route: 048
  11. LATANOPROST [Concomitant]
     Indication: GLAUCOMA
     Route: 047

REACTIONS (1)
  - CHALAZION [None]
